FAERS Safety Report 12327966 (Version 1)
Quarter: 2016Q2

REPORT INFORMATION
  Report Type: Spontaneous
  Country: GB (occurrence: GB)
  Receive Date: 20160503
  Receipt Date: 20160503
  Transmission Date: 20160815
  Serious: Yes (Other)
  Sender: FDA-Public Use
  Company Number: GB-WATSON-2016-08594

PATIENT
  Age: 42 Year
  Sex: Female
  Weight: 63 kg

DRUGS (3)
  1. IBUPROFEN. [Concomitant]
     Active Substance: IBUPROFEN
     Indication: PRODUCT USED FOR UNKNOWN INDICATION
     Dosage: UNK, UNKNOWN
     Route: 065
  2. NAPROXEN (UNKNOWN) [Suspect]
     Active Substance: NAPROXEN
     Indication: MYOFASCIAL PAIN SYNDROME
     Dosage: 500 MG, BID
     Route: 048
     Dates: start: 20160329, end: 20160406
  3. DICLOFENAC [Concomitant]
     Active Substance: DICLOFENAC
     Indication: PRODUCT USED FOR UNKNOWN INDICATION
     Dosage: UNK, UNKNOWN
     Route: 065

REACTIONS (6)
  - Fatigue [Recovering/Resolving]
  - Eczema [Recovering/Resolving]
  - Eye pain [Recovering/Resolving]
  - Rash pustular [Recovering/Resolving]
  - Lip dry [Recovering/Resolving]
  - Dry skin [Recovering/Resolving]

NARRATIVE: CASE EVENT DATE: 20160402
